FAERS Safety Report 9785463 (Version 3)
Quarter: 2013Q4

REPORT INFORMATION
  Report Type: Spontaneous
  Country: GB (occurrence: GB)
  Receive Date: 20131227
  Receipt Date: 20131230
  Transmission Date: 20140711
  Serious: Yes (Death, Other)
  Sender: FDA-Public Use
  Company Number: GB-MPIJNJ-2013JNJ001458

PATIENT
  Sex: 0

DRUGS (11)
  1. VELCADE [Suspect]
     Indication: PLASMA CELL MYELOMA
     Dosage: UNK MG, UNK
     Route: 065
     Dates: start: 20070220, end: 20070223
  2. SODIUM BICARBONATE [Concomitant]
     Dosage: 1200.00 MG, UNK
     Dates: end: 20070220
  3. CALCICHEW-D3 [Concomitant]
     Dates: end: 20070227
  4. ZOTON [Concomitant]
     Dosage: 30.00 MG, UNK
     Dates: end: 20070227
  5. DOMPERIDONE [Concomitant]
     Dosage: 10.00 MG, UNK
     Dates: end: 20070227
  6. ALLOPURINOL [Concomitant]
     Dosage: UNK MG, UNK
     Dates: end: 20070227
  7. SANDO K [Concomitant]
     Dates: end: 20070227
  8. METRONIDAZOLE [Concomitant]
     Dosage: 400.00 MG, UNK
     Dates: start: 200702, end: 20070227
  9. PHOSPHATE-SANDOZ [Concomitant]
     Dates: end: 20070227
  10. ONDANSETRON [Concomitant]
     Dosage: 8.00 MG, UNK
     Dates: end: 20070227
  11. DEXAMETHASONE [Concomitant]
     Dosage: 20.00 MG, UNK
     Dates: start: 200702, end: 20070227

REACTIONS (8)
  - Disease progression [Fatal]
  - Renal impairment [Not Recovered/Not Resolved]
  - Cardiac disorder [Not Recovered/Not Resolved]
  - Pulmonary oedema [Not Recovered/Not Resolved]
  - Troponin I increased [Not Recovered/Not Resolved]
  - Septic shock [Not Recovered/Not Resolved]
  - Lower respiratory tract infection [Not Recovered/Not Resolved]
  - Cerebrovascular disorder [Not Recovered/Not Resolved]
